FAERS Safety Report 22287004 (Version 1)
Quarter: 2023Q2

REPORT INFORMATION
  Report Type: Spontaneous
  Country: US (occurrence: US)
  Receive Date: 20230505
  Receipt Date: 20230505
  Transmission Date: 20230722
  Serious: No
  Sender: FDA-Public Use
  Company Number: US-NEUROCRINE BIOSCIENCES INC.-2023NBI03435

PATIENT

DRUGS (4)
  1. INGREZZA [Suspect]
     Active Substance: VALBENAZINE
     Indication: Tardive dyskinesia
     Dosage: 80 MILLIGRAM
     Route: 065
     Dates: start: 2023, end: 2023
  2. ZYPREXA [Concomitant]
     Active Substance: OLANZAPINE
  3. DEPAKOTE [Concomitant]
     Active Substance: DIVALPROEX SODIUM
  4. CLONAZEPAM [Concomitant]
     Active Substance: CLONAZEPAM

REACTIONS (1)
  - Aggression [Unknown]
